FAERS Safety Report 10345639 (Version 2)
Quarter: 2014Q3

REPORT INFORMATION
  Report Type: Spontaneous
  Country: CN (occurrence: CN)
  Receive Date: 20140728
  Receipt Date: 20140728
  Transmission Date: 20150326
  Serious: Yes (Hospitalization)
  Sender: FDA-Public Use
  Company Number: PHHY2011CN74100

PATIENT
  Age: 3 Year
  Sex: Male

DRUGS (3)
  1. TOPIRAMATE. [Concomitant]
     Active Substance: TOPIRAMATE
     Indication: EPILEPSY
     Dosage: UNK UKN, UNK
  2. VALPROATE SODIUM. [Concomitant]
     Active Substance: VALPROATE SODIUM
     Indication: EPILEPSY
     Dosage: UNK UKN, UNK
  3. CARBAMAZEPINE. [Suspect]
     Active Substance: CARBAMAZEPINE
     Indication: CONVULSION
     Dosage: UNK UKN, UNK
     Route: 048

REACTIONS (41)
  - Sepsis [Recovered/Resolved]
  - Multi-organ failure [Recovered/Resolved]
  - Breath sounds abnormal [Recovered/Resolved]
  - Wheezing [Recovered/Resolved]
  - Eyelid oedema [Recovered/Resolved]
  - Conjunctival hyperaemia [Recovered/Resolved]
  - Lip haemorrhage [Recovered/Resolved]
  - Vulvar erosion [Recovered/Resolved]
  - Drug eruption [Recovered/Resolved]
  - Staphylococcus test positive [Recovered/Resolved]
  - Dyspnoea [Recovered/Resolved]
  - Hypersensitivity [Recovered/Resolved]
  - Skin atrophy [Recovered/Resolved]
  - Erythema of eyelid [Recovered/Resolved]
  - Tenderness [Recovered/Resolved]
  - Lymphocyte count increased [Recovered/Resolved]
  - C-reactive protein increased [Recovered/Resolved]
  - Blood albumin decreased [Recovered/Resolved]
  - Alanine aminotransferase increased [Recovered/Resolved]
  - Erythema [Recovered/Resolved]
  - Generalised erythema [Recovered/Resolved]
  - Skin injury [Recovered/Resolved]
  - Feeling abnormal [Recovered/Resolved]
  - Blister [Recovered/Resolved]
  - Erythema multiforme [Recovered/Resolved]
  - Oral mucosa erosion [Recovered/Resolved]
  - Eyelid exfoliation [Recovered/Resolved]
  - Protein total decreased [Recovered/Resolved]
  - Herpes zoster [Recovered/Resolved]
  - Pyrexia [Recovered/Resolved]
  - Respiratory depression [Recovered/Resolved]
  - Productive cough [Recovered/Resolved]
  - Rash [Recovered/Resolved]
  - Effusion [Recovered/Resolved]
  - Platelet count increased [Recovered/Resolved]
  - Nikolsky^s sign [Recovered/Resolved]
  - Toxic epidermal necrolysis [Recovered/Resolved]
  - Skin erosion [Recovered/Resolved]
  - Chapped lips [Recovered/Resolved]
  - Neutrophil count increased [Recovered/Resolved]
  - Aspartate aminotransferase increased [Recovered/Resolved]
